FAERS Safety Report 6556929-1 (Version None)
Quarter: 2010Q1

REPORT INFORMATION
  Report Type: 
  Country: None (occurrence: None)
  Receive Date: 20100128
  Receipt Date: 20100117
  Transmission Date: 20100710
  Serious: Yes (Death)
  Sender: FDA-Public Use
  Company Number: TW-BAXTER-2010BH000681

PATIENT
  Age: 56 Year

DRUGS (6)
  1. DIANEAL [Suspect]
     Indication: PERITONEAL DIALYSIS
     Route: 033
     Dates: start: 20091201
  2. DIANEAL [Suspect]
     Route: 033
     Dates: start: 20091201
  3. DIANEAL [Suspect]
     Indication: PERITONEAL DIALYSIS
     Route: 033
     Dates: start: 20091201
  4. DIANEAL [Suspect]
     Route: 033
     Dates: start: 20091201
  5. DIANEAL [Suspect]
     Indication: PERITONEAL DIALYSIS
     Route: 033
     Dates: start: 20091201
  6. DIANEAL [Suspect]
     Route: 033
     Dates: start: 20091201

REACTIONS (1)
  - SUDDEN DEATH [None]
